FAERS Safety Report 10679842 (Version 2)
Quarter: 2015Q1

REPORT INFORMATION
  Report Type: Spontaneous
  Country: US (occurrence: US)
  Receive Date: 20141229
  Receipt Date: 20150305
  Transmission Date: 20150720
  Serious: No
  Sender: FDA-Public Use
  Company Number: US-PFIZER INC-2014355675

PATIENT
  Age: 76 Year
  Sex: Male
  Weight: 74 kg

DRUGS (1)
  1. LYRICA [Suspect]
     Active Substance: PREGABALIN
     Indication: NUCHAL RIGIDITY
     Dosage: 5ML OR 6ML BY FEEDING TUBE
     Route: 048
     Dates: start: 20141016

REACTIONS (3)
  - Speech disorder [Unknown]
  - Bruxism [Unknown]
  - Headache [Unknown]

NARRATIVE: CASE EVENT DATE: 2014
